FAERS Safety Report 5228393-6 (Version None)
Quarter: 2007Q1

REPORT INFORMATION
  Report Type: 
  Country: None (occurrence: None)
  Receive Date: 20070205
  Receipt Date: 20070123
  Transmission Date: 20070707
  Serious: Yes (Other)
  Sender: FDA-Public Use
  Company Number: PHRM2007FR00650

PATIENT
  Age: 14 Year
  Sex: Male

DRUGS (2)
  1. IMIGRAN NASAL [Suspect]
     Indication: MIGRAINE
     Route: 045
  2. RITALIN [Suspect]
     Indication: ATTENTION DEFICIT/HYPERACTIVITY DISORDER
     Dosage: 30 MG, QD
     Route: 048

REACTIONS (3)
  - DRUG INTERACTION [None]
  - MIGRAINE [None]
  - SUDDEN ONSET OF SLEEP [None]
